FAERS Safety Report 23897762 (Version 1)
Quarter: 2024Q2

REPORT INFORMATION
  Report Type: Spontaneous
  Country: ES (occurrence: ES)
  Receive Date: 20240524
  Receipt Date: 20240524
  Transmission Date: 20240716
  Serious: Yes (Hospitalization)
  Sender: FDA-Public Use
  Company Number: ES-SANDOZ-SDZ2024ES050837

PATIENT
  Age: 48 Year
  Sex: Male

DRUGS (4)
  1. CLOZAPINE [Suspect]
     Active Substance: CLOZAPINE
     Dosage: 500 MG, QD
     Route: 065
  2. CLOZAPINE [Suspect]
     Active Substance: CLOZAPINE
     Indication: Schizophrenia
     Dosage: 600 MG, QD
     Route: 065
  3. QUETIAPINE [Suspect]
     Active Substance: QUETIAPINE
     Indication: Schizophrenia
     Dosage: 1200 MG, QD
     Route: 065
  4. QUETIAPINE [Suspect]
     Active Substance: QUETIAPINE
     Dosage: 400 MG, QD
     Route: 065

REACTIONS (6)
  - Sedation complication [Recovered/Resolved]
  - Thinking abnormal [Recovered/Resolved]
  - Salivary hypersecretion [Recovered/Resolved]
  - Walking disability [Recovered/Resolved]
  - Tobacco interaction [Recovered/Resolved]
  - Drug interaction [Recovered/Resolved]
